FAERS Safety Report 5028926-9 (Version None)
Quarter: 2006Q2

REPORT INFORMATION
  Report Type: 
  Country: None (occurrence: None)
  Receive Date: 20060619
  Receipt Date: 20060616
  Transmission Date: 20061013
  Serious: Yes (Hospitalization)
  Sender: FDA-Public Use
  Company Number: FR-GLAXOSMITHKLINE-B0427756A

PATIENT
  Age: 85 Year
  Sex: Female
  Weight: 42 kg

DRUGS (3)
  1. CLAMOXYL [Suspect]
     Indication: GENERAL PHYSICAL HEALTH DETERIORATION
     Route: 065
     Dates: start: 20060504, end: 20060515
  2. ALDACTAZIDE [Concomitant]
     Indication: ESSENTIAL HYPERTENSION
     Route: 065
     Dates: start: 20060512, end: 20060515
  3. XANAX [Concomitant]
     Route: 065
     Dates: start: 20060512, end: 20060515

REACTIONS (4)
  - BLOOD PHOSPHORUS INCREASED [None]
  - GAMMA-GLUTAMYLTRANSFERASE INCREASED [None]
  - HEPATIC ENZYME INCREASED [None]
  - HEPATITIS ACUTE [None]
